FAERS Safety Report 15149730 (Version 1)
Quarter: 2018Q3

REPORT INFORMATION
  Report Type: Spontaneous
  Country: US (occurrence: US)
  Receive Date: 20180619
  Receipt Date: 20180619
  Transmission Date: 20181010
  Serious: No
  Sender: FDA-Public Use
  Company Number: None

PATIENT
  Age: 72 Year
  Sex: Female
  Weight: 61.23 kg

DRUGS (2)
  1. CEFTRIAXONE 2GM POWDER VIAL APOTEX [Suspect]
     Active Substance: CEFTRIAXONE
     Indication: INTERVERTEBRAL DISCITIS
     Dosage: ?          OTHER FREQUENCY:OTHER ? Q 24 HOURS;?
     Route: 042
     Dates: start: 20180608, end: 20180618
  2. DAPTOMYCIN 500 MG POWDER VIAL HOSPIRA [Suspect]
     Active Substance: DAPTOMYCIN
     Indication: INTERVERTEBRAL DISCITIS
     Dosage: ?          OTHER FREQUENCY:OTHER ? Q24 HOURS;?
     Route: 042
     Dates: start: 20180608, end: 20180618

REACTIONS (6)
  - Peripheral swelling [None]
  - Pain [None]
  - Hypoaesthesia [None]
  - Condition aggravated [None]
  - Asthenia [None]
  - Paraesthesia [None]

NARRATIVE: CASE EVENT DATE: 20180618
